FAERS Safety Report 8126882-8 (Version None)
Quarter: 2012Q1

REPORT INFORMATION
  Report Type: 
  Country: None (occurrence: None)
  Receive Date: 20120210
  Receipt Date: 20120207
  Transmission Date: 20120608
  Serious: No
  Sender: FDA-Public Use
  Company Number: US-PFIZER INC-2012034192

PATIENT
  Sex: Male
  Weight: 68.027 kg

DRUGS (2)
  1. LOSARTAN [Concomitant]
     Indication: HYPERTENSION
     Dosage: 50 MG, 2X/DAY
     Dates: start: 20110101
  2. ALDACTONE [Suspect]
     Indication: HYPERTENSION
     Dosage: 25 MG, DAILY
     Dates: start: 20110101, end: 20111101

REACTIONS (1)
  - GYNAECOMASTIA [None]
